FAERS Safety Report 22797301 (Version 5)
Quarter: 2023Q4

REPORT INFORMATION
  Report Type: Other
  Country: KR (occurrence: None)
  Receive Date: 20230808
  Receipt Date: 20231009
  Transmission Date: 20240110
  Serious: Yes (Hospitalization)
  Sender: FDA-Public Use
  Company Number: KR-ROCHE-3393954

PATIENT
  Age: 65 Year
  Sex: Female
  Weight: 69.6 kg

DRUGS (5)
  1. ADO-TRASTUZUMAB EMTANSINE [Suspect]
     Active Substance: ADO-TRASTUZUMAB EMTANSINE
     Indication: Palliative care
     Dosage: LAST DOSE DATE OF SUSPECTED DRUG 21/AUG/2023,
     Route: 042
     Dates: start: 20230712, end: 20230712
  2. ADO-TRASTUZUMAB EMTANSINE [Suspect]
     Active Substance: ADO-TRASTUZUMAB EMTANSINE
     Indication: Bladder cancer
     Route: 042
     Dates: start: 20230801, end: 20230801
  3. ADO-TRASTUZUMAB EMTANSINE [Suspect]
     Active Substance: ADO-TRASTUZUMAB EMTANSINE
     Route: 042
     Dates: start: 20230821, end: 20230821
  4. TRAMADOL HYDROCHLORIDE [Concomitant]
     Active Substance: TRAMADOL HYDROCHLORIDE
     Route: 042
     Dates: start: 20230722, end: 20230723
  5. PROFA [Concomitant]
     Route: 042
     Dates: start: 20230722, end: 20230722

REACTIONS (3)
  - Abdominal pain [Recovered/Resolved]
  - Blood creatinine increased [Recovered/Resolved]
  - Acute kidney injury [Not Recovered/Not Resolved]

NARRATIVE: CASE EVENT DATE: 20230719
